FAERS Safety Report 4777168-0 (Version None)
Quarter: 2005Q3

REPORT INFORMATION
  Report Type: 
  Country: None (occurrence: None)
  Receive Date: 20050923
  Receipt Date: 20050912
  Transmission Date: 20060218
  Serious: Yes (Life-Threatening, Hospitalization)
  Sender: FDA-Public Use
  Company Number: GB-ROCHE-417692

PATIENT
  Age: 60 Year
  Sex: Female
  Weight: 75 kg

DRUGS (9)
  1. PEGASYS [Suspect]
     Indication: HEPATITIS C
     Route: 058
     Dates: start: 20050222, end: 20050819
  2. COPEGUS [Suspect]
     Indication: HEPATITIS C
     Route: 048
     Dates: start: 20050428, end: 20050819
  3. ASPIRIN [Concomitant]
     Route: 065
     Dates: end: 20050825
  4. ATENOLOL [Concomitant]
     Route: 065
  5. BENDROFLUMETHIAZIDE [Concomitant]
     Route: 065
  6. CELECOXIB [Concomitant]
     Route: 065
     Dates: end: 20050825
  7. SIMVASTATIN [Concomitant]
     Route: 065
     Dates: end: 20050825
  8. TOLBUTAMIDE [Concomitant]
     Route: 065
  9. PERINDOPRIL [Concomitant]
     Route: 065

REACTIONS (4)
  - EYE INJURY [None]
  - IDIOPATHIC THROMBOCYTOPENIC PURPURA [None]
  - INCREASED TENDENCY TO BRUISE [None]
  - RECTAL HAEMORRHAGE [None]
